FAERS Safety Report 23763446 (Version 1)
Quarter: 2024Q2

REPORT INFORMATION
  Report Type: Spontaneous
  Country: US (occurrence: US)
  Receive Date: 20240419
  Receipt Date: 20240419
  Transmission Date: 20240716
  Serious: Yes (Death, Hospitalization, Other)
  Sender: FDA-Public Use
  Company Number: US-AMGEN-USASP2024074156

PATIENT

DRUGS (2)
  1. RITUXIMAB [Suspect]
     Active Substance: RITUXIMAB
     Indication: Paraneoplastic syndrome
     Dosage: UNK
     Route: 065
  2. INFLIXIMAB [Suspect]
     Active Substance: INFLIXIMAB
     Indication: Product used for unknown indication
     Dosage: UNK
     Route: 065

REACTIONS (41)
  - Death [Fatal]
  - Encephalitis [Fatal]
  - Paraneoplastic syndrome [Unknown]
  - Progressive cerebellar degeneration [Unknown]
  - Chronic inflammatory demyelinating polyradiculoneuropathy [Unknown]
  - Paraneoplastic encephalomyelitis [Unknown]
  - Neuropathy peripheral [Unknown]
  - Myasthenia gravis [Unknown]
  - Cushing^s syndrome [Unknown]
  - Hypercalcaemia of malignancy [Unknown]
  - Paraneoplastic dermatomyositis [Unknown]
  - Polymyalgia rheumatica [Unknown]
  - Hypertrophic osteoarthropathy [Unknown]
  - Synovitis [Unknown]
  - Tenosynovitis [Unknown]
  - Polycythaemia [Unknown]
  - Pseudoachalasia [Unknown]
  - Stauffer^s syndrome [Unknown]
  - Nephritic syndrome [Unknown]
  - Nephrotic syndrome [Unknown]
  - Non-small cell lung cancer [Unknown]
  - Renal cell carcinoma [Unknown]
  - Small cell lung cancer [Unknown]
  - Squamous cell carcinoma of head and neck [Unknown]
  - Transitional cell carcinoma [Unknown]
  - Malignant melanoma [Unknown]
  - Skin cancer [Unknown]
  - Neoplasm malignant [Unknown]
  - Polymyositis [Unknown]
  - Adverse event [Unknown]
  - Hepatitis [Unknown]
  - Myocarditis [Unknown]
  - Pneumonitis [Unknown]
  - Colitis [Unknown]
  - Off label use [Unknown]
  - Thyroid disorder [Unknown]
  - Hypophysitis [Unknown]
  - Myositis [Unknown]
  - Toxicity to various agents [Unknown]
  - Skin disorder [Unknown]
  - Diarrhoea [Unknown]
